FAERS Safety Report 8481979-8 (Version None)
Quarter: 2012Q2

REPORT INFORMATION
  Report Type: 
  Country: None (occurrence: None)
  Receive Date: 20120402
  Receipt Date: 20110923
  Transmission Date: 20120825
  Serious: Yes (Hospitalization)
  Sender: FDA-Public Use
  Company Number: A-US2011-54659

PATIENT
  Age: 75 Year
  Sex: Female

DRUGS (4)
  1. REVATIO [Concomitant]
  2. ANTIHYPERTENSIVES [Concomitant]
  3. TRACLEER [Suspect]
     Indication: PULMONARY ARTERIAL HYPERTENSION
     Dosage: UNK, ORAL
     Route: 048
     Dates: start: 20110831
  4. CALCIUM CHANNEL BLOCKERS [Concomitant]

REACTIONS (1)
  - LOSS OF CONSCIOUSNESS [None]
